FAERS Safety Report 8182991-9 (Version None)
Quarter: 2012Q1

REPORT INFORMATION
  Report Type: 
  Country: None (occurrence: None)
  Receive Date: 20120305
  Receipt Date: 20111122
  Transmission Date: 20120608
  Serious: No
  Sender: FDA-Public Use
  Company Number: US-BRISTOL-MYERS SQUIBB COMPANY-16243560

PATIENT
  Age: 42 Year
  Sex: Female

DRUGS (2)
  1. EXFORGE [Concomitant]
     Indication: HYPERTENSION
  2. KOMBIGLYZE XR [Suspect]
     Dosage: 1DF:5MG/1000 OID

REACTIONS (1)
  - DIARRHOEA [None]
